FAERS Safety Report 15185755 (Version 3)
Quarter: 2018Q3

REPORT INFORMATION
  Report Type: Spontaneous
  Country: US (occurrence: US)
  Receive Date: 20180723
  Receipt Date: 20180830
  Transmission Date: 20181010
  Serious: Yes (Hospitalization, Other)
  Sender: FDA-Public Use
  Company Number: US-JAZZ-2018-US-011029

PATIENT
  Sex: Female

DRUGS (2)
  1. PRIALT [Suspect]
     Active Substance: ZICONOTIDE ACETATE
     Dosage: DECREASED TO MINIMUM RATE
     Route: 037
     Dates: start: 2018, end: 2018
  2. PRIALT [Suspect]
     Active Substance: ZICONOTIDE ACETATE
     Indication: PRODUCT USED FOR UNKNOWN INDICATION
     Dosage: UNK ?G, QH
     Route: 037
     Dates: start: 2018, end: 2018

REACTIONS (2)
  - Implant site infection [Unknown]
  - Meningitis [Unknown]
